FAERS Safety Report 5784604-X (Version None)
Quarter: 2008Q2

REPORT INFORMATION
  Report Type: 
  Country: None (occurrence: None)
  Receive Date: 20080605
  Receipt Date: 20080410
  Transmission Date: 20081010
  Serious: No
  Sender: FDA-Public Use
  Company Number: A0721996A

PATIENT
  Age: 57 Year
  Sex: Female

DRUGS (3)
  1. ALLI [Suspect]
     Indication: WEIGHT LOSS DIET
     Route: 048
     Dates: start: 20070601
  2. BENICAR [Suspect]
     Route: 065
  3. ACTONEL [Concomitant]

REACTIONS (9)
  - AGITATION [None]
  - BLOOD POTASSIUM DECREASED [None]
  - EAR INFECTION [None]
  - FEELING ABNORMAL [None]
  - HYPERTENSION [None]
  - INSOMNIA [None]
  - STRESS [None]
  - TINNITUS [None]
  - URTICARIA [None]
